FAERS Safety Report 13153262 (Version 3)
Quarter: 2017Q1

REPORT INFORMATION
  Report Type: Spontaneous
  Country: US (occurrence: US)
  Receive Date: 20170126
  Receipt Date: 20170217
  Transmission Date: 20170428
  Serious: No
  Sender: FDA-Public Use
  Company Number: US-ALEXION PHARMACEUTICALS INC.-A201700432

PATIENT
  Sex: Male

DRUGS (1)
  1. SOLIRIS [Suspect]
     Active Substance: ECULIZUMAB
     Indication: PAROXYSMAL NOCTURNAL HAEMOGLOBINURIA
     Dosage: UNK
     Route: 042

REACTIONS (17)
  - Blood creatinine abnormal [Unknown]
  - White blood cell count abnormal [Unknown]
  - Red blood cell count abnormal [Unknown]
  - Blood chloride abnormal [Unknown]
  - Lymphocyte count abnormal [Unknown]
  - Blood sodium abnormal [Unknown]
  - Blood glucose abnormal [Unknown]
  - Protein total abnormal [Unknown]
  - Bilirubin conjugated abnormal [Unknown]
  - Blood urea abnormal [Unknown]
  - Mean cell haemoglobin concentration abnormal [Unknown]
  - Mean platelet volume abnormal [Unknown]
  - Haemoglobin abnormal [Unknown]
  - Haematocrit abnormal [Unknown]
  - Mean cell volume abnormal [Unknown]
  - Glomerular filtration rate abnormal [Unknown]
  - Monocyte count abnormal [Unknown]

NARRATIVE: CASE EVENT DATE: 20170110
